FAERS Safety Report 9143639 (Version 1)
Quarter: 2013Q1

REPORT INFORMATION
  Report Type: Spontaneous
  Country: AT (occurrence: AT)
  Receive Date: 20130306
  Receipt Date: 20130306
  Transmission Date: 20140127
  Serious: Yes (Other)
  Sender: FDA-Public Use
  Company Number: AT-TEVA-388442ISR

PATIENT
  Age: 47 Year
  Sex: 0

DRUGS (3)
  1. TOPIRAMATE [Suspect]
     Indication: CLUSTER HEADACHE
  2. VERAPAMIL [Suspect]
     Indication: CLUSTER HEADACHE
  3. LITHIUM [Suspect]
     Indication: CLUSTER HEADACHE

REACTIONS (3)
  - Renal failure [Unknown]
  - Speech disorder [Unknown]
  - Gingival hyperplasia [Unknown]
